FAERS Safety Report 4788762-5 (Version None)
Quarter: 2005Q4

REPORT INFORMATION
  Report Type: 
  Country: None (occurrence: None)
  Receive Date: 20051005
  Receipt Date: 20051003
  Transmission Date: 20060501
  Serious: Yes (Disabling)
  Sender: FDA-Public Use
  Company Number: PHFR2005GB03257

PATIENT
  Age: 46 Year
  Sex: Male

DRUGS (2)
  1. PENICILLIN V [Concomitant]
     Indication: PHARYNGITIS
     Dosage: 250MG/DAY
     Route: 048
     Dates: start: 20041207, end: 20041214
  2. TERBINAFINE [Suspect]
     Indication: ONYCHOMYCOSIS
     Dosage: 250 MG, QD
     Route: 048
     Dates: start: 20040812, end: 20041101

REACTIONS (1)
  - HYPOPLASTIC ANAEMIA [None]
